FAERS Safety Report 5466957-5 (Version None)
Quarter: 2007Q3

REPORT INFORMATION
  Report Type: 
  Country: None (occurrence: None)
  Receive Date: 20070925
  Receipt Date: 20070914
  Transmission Date: 20080115
  Serious: Yes (Other)
  Sender: FDA-Public Use
  Company Number: JP-JNJFOC-20070706358

PATIENT
  Sex: Female

DRUGS (6)
  1. ITRIZOLE [Suspect]
     Indication: PROPHYLAXIS
     Route: 048
  2. VINCRISTINE SULFATE [Concomitant]
     Indication: LYMPHOMA
     Route: 042
  3. ENDOXAN [Concomitant]
     Indication: LYMPHOMA
     Route: 042
  4. RITUXAN [Concomitant]
     Indication: LYMPHOMA
     Route: 042
  5. BAKTAR [Concomitant]
     Indication: INFECTION
     Route: 048
  6. LAXOBERON [Concomitant]
     Indication: CONSTIPATION
     Route: 048

REACTIONS (1)
  - ILEUS PARALYTIC [None]
